FAERS Safety Report 8919986 (Version 1)
Quarter: 2012Q4

REPORT INFORMATION
  Report Type: 
  Country: US (occurrence: US)
  Receive Date: 20121121
  Receipt Date: 20121121
  Transmission Date: 20130627
  Serious: No
  Sender: FDA-Public Use
  Company Number: US-009507513-1211USA006240

PATIENT
  Sex: Female

DRUGS (2)
  1. MAXALT [Suspect]
     Dosage: 10 mg, UNK
     Route: 048
  2. RIZATRIPTAN BENZOATE [Suspect]
     Dosage: UNK mg, UNK
     Route: 048

REACTIONS (2)
  - Somnolence [Unknown]
  - Hypervigilance [Unknown]
